FAERS Safety Report 24445992 (Version 3)
Quarter: 2024Q4

REPORT INFORMATION
  Report Type: Spontaneous
  Country: JP (occurrence: JP)
  Receive Date: 20241016
  Receipt Date: 20241106
  Transmission Date: 20250115
  Serious: Yes (Death, Other)
  Sender: GENMAB
  Company Number: JP-GENMAB-2024-01923

PATIENT
  Age: 58 Year
  Sex: Female

DRUGS (3)
  1. EPKINLY [Suspect]
     Active Substance: EPCORITAMAB-BYSP
     Indication: Diffuse large B-cell lymphoma
     Dosage: UNK
     Route: 058
     Dates: start: 20240206, end: 20240206
  2. EPKINLY [Suspect]
     Active Substance: EPCORITAMAB-BYSP
     Dosage: UNK, ADMINISTERED FROM CYCLE 4 TO CYCLE 6
     Route: 058
     Dates: start: 20240509, end: 2024
  3. PREDNISOLONE [Concomitant]
     Active Substance: PREDNISOLONE
     Indication: Premedication
     Dosage: UNK
     Dates: start: 202402, end: 2024

REACTIONS (9)
  - Femur fracture [Fatal]
  - Dehydration [Fatal]
  - Malaise [Fatal]
  - Pneumonia [Unknown]
  - Diffuse large B-cell lymphoma [Fatal]
  - C-reactive protein increased [Unknown]
  - Bronchitis [Unknown]
  - General physical health deterioration [Unknown]
  - Decreased appetite [Unknown]

NARRATIVE: CASE EVENT DATE: 20240101
